FAERS Safety Report 14872862 (Version 1)
Quarter: 2018Q2

REPORT INFORMATION
  Report Type: Spontaneous
  Country: PL (occurrence: PL)
  Receive Date: 20180510
  Receipt Date: 20180510
  Transmission Date: 20180711
  Serious: Yes (Other)
  Sender: FDA-Public Use
  Company Number: PL-IPCA LABORATORIES LIMITED-IPC-2018-PL-000985

PATIENT
  Age: 84 Year
  Sex: Female

DRUGS (9)
  1. FUROSEMIDE. [Suspect]
     Active Substance: FUROSEMIDE
     Indication: EPILEPSY
     Dosage: UNK
     Route: 065
  2. HYDROXYZINE [Suspect]
     Active Substance: HYDROXYZINE HYDROCHLORIDE
     Indication: EPILEPSY
     Dosage: UNK
     Route: 065
  3. RAMIPRIL. [Suspect]
     Active Substance: RAMIPRIL
     Indication: EPILEPSY
     Dosage: UNK
     Route: 065
  4. BISOPROLOL [Suspect]
     Active Substance: BISOPROLOL
     Indication: EPILEPSY
     Dosage: UNK
     Route: 065
  5. PANTOPRAZOLE [Suspect]
     Active Substance: PANTOPRAZOLE
     Indication: EPILEPSY
     Dosage: UNK
     Route: 065
  6. ACETYLSALICYLIC ACID [Suspect]
     Active Substance: ASPIRIN
     Indication: EPILEPSY
     Dosage: UNK
     Route: 065
  7. RIVAROXABAN [Suspect]
     Active Substance: RIVAROXABAN
     Indication: EPILEPSY
     Dosage: UNK
     Route: 065
  8. METFORMIN [Suspect]
     Active Substance: METFORMIN HYDROCHLORIDE
     Indication: EPILEPSY
     Dosage: UNK
     Route: 065
  9. CARBAMAZEPINE. [Suspect]
     Active Substance: CARBAMAZEPINE
     Indication: EPILEPSY
     Dosage: UNK
     Route: 065

REACTIONS (1)
  - Drug reaction with eosinophilia and systemic symptoms [Unknown]
